FAERS Safety Report 4277536-X (Version None)
Quarter: 2004Q1

REPORT INFORMATION
  Report Type: 
  Country: None (occurrence: None)
  Receive Date: 20040121
  Receipt Date: 20030618
  Transmission Date: 20041129
  Serious: Yes (Hospitalization)
  Sender: FDA-Public Use
  Company Number: 2002IM000012

PATIENT
  Age: 74 Year
  Sex: Female
  Weight: 73.4827 kg

DRUGS (20)
  1. INTERFERON GAMMA-1B [Suspect]
     Indication: LUNG INFECTION
     Dosage: 500 UG; TIW; INHALATION
     Dates: start: 20011219
  2. INTERFERON GAMMA-1B [Suspect]
     Indication: MYCOBACTERIUM AVIUM COMPLEX INFECTION
     Dosage: 500 UG; TIW; INHALATION
     Dates: start: 20011219
  3. PLAVIX [Suspect]
     Indication: CEREBROVASCULAR ACCIDENT
     Dosage: 75 MG, QD, ORAL
     Route: 048
     Dates: start: 20000428
  4. GLYBURIDE [Concomitant]
  5. TEGRETOL [Concomitant]
  6. SYNTHROID [Concomitant]
  7. MAXIDE 50 [Concomitant]
  8. PROZAC [Concomitant]
  9. ZOCOR [Concomitant]
  10. ZESTRIL [Concomitant]
  11. ASPIRIN [Concomitant]
  12. IBUPROPHEN [Concomitant]
  13. CALCIUM [Concomitant]
  14. VITAMIN E [Concomitant]
  15. VITAMIN C [Concomitant]
  16. CENTRUM SILVER MULTIVITAMIN [Concomitant]
  17. PREMPRIL [Concomitant]
  18. CLARITHROMYCIN [Concomitant]
  19. RIFAMPIN [Concomitant]
  20. ETHAMBUTOL HCL [Concomitant]

REACTIONS (9)
  - BLOOD PRESSURE INCREASED [None]
  - CHEST PAIN [None]
  - CHROMATURIA [None]
  - COMPUTERISED TOMOGRAM ABNORMAL [None]
  - COUGH [None]
  - DIZZINESS [None]
  - DYSPNOEA [None]
  - HAEMOPTYSIS [None]
  - HEART RATE INCREASED [None]
